FAERS Safety Report 7244547-1 (Version None)
Quarter: 2011Q1

REPORT INFORMATION
  Report Type: 
  Country: None (occurrence: None)
  Receive Date: 20110125
  Receipt Date: 20110113
  Transmission Date: 20110831
  Serious: Yes (Other)
  Sender: FDA-Public Use
  Company Number: JP-PFIZER INC-2011014645

PATIENT
  Age: 78 Year
  Sex: Female
  Weight: 60 kg

DRUGS (10)
  1. CAMPTOSAR [Suspect]
     Dosage: 110 MG, UNK
     Route: 041
     Dates: start: 20100621, end: 20100621
  2. CAMPTOSAR [Suspect]
     Dosage: 90 MG, UNK
     Route: 041
     Dates: start: 20100705, end: 20100726
  3. FLUOROURACIL [Concomitant]
     Indication: COLORECTAL CANCER
     Dosage: 3000 MG, UNK
     Route: 041
     Dates: start: 20100510, end: 20100607
  4. FLUOROURACIL [Concomitant]
     Dosage: 1500 MG, UNK
     Route: 041
     Dates: start: 20100726, end: 20100726
  5. CAMPTOSAR [Suspect]
     Dosage: 140 MG, UNK
     Route: 041
     Dates: start: 20100524, end: 20100607
  6. FLUOROURACIL [Concomitant]
     Dosage: 2000 MG, UNK
     Route: 041
     Dates: start: 20100705, end: 20100705
  7. CALCIUM LEVOFOLINATE [Concomitant]
     Indication: COLORECTAL CANCER
     Dosage: 250 MG, UNK
     Route: 041
     Dates: start: 20100510, end: 20100607
  8. CALCIUM LEVOFOLINATE [Concomitant]
     Dosage: 200 MG, UNK
     Route: 041
     Dates: start: 20100621, end: 20100726
  9. FLUOROURACIL [Concomitant]
     Dosage: 2500 MG, UNK
     Route: 041
     Dates: start: 20100621, end: 20100621
  10. CAMPTOSAR [Suspect]
     Indication: COLORECTAL CANCER
     Dosage: 180 MG, UNK
     Route: 041
     Dates: start: 20100510, end: 20100510

REACTIONS (1)
  - NEUROPATHY PERIPHERAL [None]
